FAERS Safety Report 7538698-1 (Version None)
Quarter: 2011Q2

REPORT INFORMATION
  Report Type: 
  Country: None (occurrence: None)
  Receive Date: 20110610
  Receipt Date: 20110603
  Transmission Date: 20111010
  Serious: Yes (Death, Hospitalization, Other)
  Sender: FDA-Public Use
  Company Number: JP-CELGENEUS-087-21880-10111549

PATIENT
  Sex: Female

DRUGS (3)
  1. ASPIRIN [Concomitant]
     Indication: PROPHYLAXIS
     Dosage: 100 MILLIGRAM
     Route: 048
     Dates: start: 20101015, end: 20101017
  2. REVLIMID [Suspect]
     Indication: MULTIPLE MYELOMA
     Dosage: 25 MILLIGRAM
     Route: 048
     Dates: start: 20101015, end: 20101025
  3. DEXAMETHASONE [Suspect]
     Indication: MULTIPLE MYELOMA
     Dosage: 20 MILLIGRAM
     Route: 048
     Dates: start: 20101015, end: 20101017

REACTIONS (9)
  - MELAENA [None]
  - PLATELET COUNT DECREASED [None]
  - PNEUMONIA [None]
  - MOUTH HAEMORRHAGE [None]
  - DIARRHOEA [None]
  - CEREBRAL INFARCTION [None]
  - NAUSEA [None]
  - ABDOMINAL PAIN [None]
  - CLOSTRIDIAL INFECTION [None]
